FAERS Safety Report 12918546 (Version 1)
Quarter: 2016Q4

REPORT INFORMATION
  Report Type: Spontaneous
  Country: JP (occurrence: JP)
  Receive Date: 20161107
  Receipt Date: 20161107
  Transmission Date: 20170207
  Serious: Yes (Hospitalization, Other)
  Sender: FDA-Public Use
  Company Number: JP-PFIZER INC-2016353217

PATIENT
  Age: 73 Year
  Sex: Male
  Weight: 60.5 kg

DRUGS (6)
  1. BELSOMRA [Concomitant]
     Active Substance: SUVOREXANT
     Dosage: 15 MG ONCE DAILY
     Route: 048
     Dates: start: 201507
  2. RABEPRAZOLE [Concomitant]
     Active Substance: RABEPRAZOLE
     Dosage: 10 MG TWICE DAILY
     Dates: start: 201507
  3. URIEF [Concomitant]
     Active Substance: SILODOSIN
     Dosage: 4 MG ONCE DAILY
     Route: 048
     Dates: start: 201507
  4. OLOPATADINE [Concomitant]
     Active Substance: OLOPATADINE
     Dosage: 5 MG TWICE DAILY
     Route: 048
     Dates: start: 201507
  5. XALKORI [Suspect]
     Active Substance: CRIZOTINIB
     Indication: LUNG NEOPLASM MALIGNANT
     Dosage: 250 MG TWICE DAILY
     Route: 048
     Dates: start: 20160705, end: 20160717
  6. MIYA-BM [Concomitant]
     Active Substance: CLOSTRIDIUM BUTYRICUM SPORES STRAIN M-55
     Dosage: 1 G THRICE DAILY
     Route: 048
     Dates: start: 201507

REACTIONS (4)
  - Decreased appetite [Unknown]
  - Toxic skin eruption [Recovered/Resolved]
  - Malaise [Unknown]
  - Pyrexia [Recovered/Resolved]

NARRATIVE: CASE EVENT DATE: 20160716
